FAERS Safety Report 9165789 (Version 1)
Quarter: 2013Q1

REPORT INFORMATION
  Report Type: Spontaneous
  Country: US (occurrence: None)
  Receive Date: 20130228
  Receipt Date: 20130228
  Transmission Date: 20140127
  Serious: Yes (Hospitalization)
  Sender: FDA-Public Use
  Company Number: 1610684

PATIENT
  Age: 4 Year
  Sex: Female

DRUGS (3)
  1. MORPHINE SULFATE [Suspect]
     Indication: PAIN
     Dosage: 22.24 MG MILLIGRAM(S), TOTAL, INTRAVENOUS, (NOT OTHERWISE SPECIFIED)
     Route: 042
     Dates: start: 20121126, end: 20121130
  2. ALDESLEUKIN [Suspect]
     Indication: NEUROBLASTOMA
     Dosage: 2.8 MIU IU(1,000,000S), 1 DAY, UNKNOWN
     Dates: start: 20121119, end: 20121129
  3. (INVESTIGATIONAL DRUG) NEUROBLASTOMA (NEUROBLASTOMA) [Concomitant]

REACTIONS (3)
  - Ileus [None]
  - Pyrexia [None]
  - Diarrhoea [None]
